FAERS Safety Report 9042516 (Version 1)
Quarter: 2013Q1

REPORT INFORMATION
  Report Type: Report from Study
  Country: US (occurrence: US)
  Receive Date: 20130129
  Receipt Date: 20130129
  Transmission Date: 20140127
  Serious: No
  Sender: FDA-Public Use
  Company Number: US-ABBOTT-12P-163-0907204-00

PATIENT
  Age: 31 Year
  Sex: Female
  Weight: 68.1 kg

DRUGS (8)
  1. HUMIRA 40 MG/0.8 ML PEN [Suspect]
     Indication: CROHN^S DISEASE
     Dosage: EVERY WEEK
  2. HUMIRA 40 MG/0.8 ML PEN [Suspect]
     Dates: start: 20120106, end: 20120106
  3. HUMIRA 40 MG/0.8 ML PEN [Suspect]
     Dates: start: 20120120, end: 20120120
  4. HUMIRA 40 MG/0.8 ML PEN [Suspect]
  5. B12 [Concomitant]
     Indication: ANAEMIA
     Dosage: SHOTS
  6. ANTIDEPRESSANTS [Concomitant]
     Indication: PRODUCT USED FOR UNKNOWN INDICATION
  7. CITALOPRAM [Concomitant]
     Indication: DEPRESSION
  8. LEVOTHYROXINE GENERIC [Concomitant]
     Indication: HYPOTHYROIDISM
     Dosage: 150 MCG DAILY

REACTIONS (6)
  - Weight decreased [Not Recovered/Not Resolved]
  - Crohn^s disease [Unknown]
  - Drug ineffective [Unknown]
  - Depression [Unknown]
  - Abdominal pain upper [Unknown]
  - Food intolerance [Unknown]
